FAERS Safety Report 14526867 (Version 1)
Quarter: 2018Q1

REPORT INFORMATION
  Report Type: Spontaneous
  Country: IT (occurrence: IT)
  Receive Date: 20180213
  Receipt Date: 20180213
  Transmission Date: 20180509
  Serious: Yes (Hospitalization)
  Sender: FDA-Public Use
  Company Number: IT-PFIZER INC-2017112192

PATIENT
  Age: 43 Year
  Sex: Female

DRUGS (2)
  1. TAVOR (LORAZEPAM) [Suspect]
     Active Substance: LORAZEPAM
     Indication: DRUG ABUSE
     Dosage: 20 DF, UNK
     Route: 048
     Dates: start: 20161112, end: 20161112
  2. ANAFRANIL [Suspect]
     Active Substance: CLOMIPRAMINE HYDROCHLORIDE
     Indication: DRUG ABUSE
     Dosage: 10 DF, UNK
     Route: 048
     Dates: start: 20161112, end: 20161112

REACTIONS (2)
  - Drug abuse [Unknown]
  - Sopor [Unknown]

NARRATIVE: CASE EVENT DATE: 20161112
